FAERS Safety Report 8811227 (Version 1)
Quarter: 2012Q4

REPORT INFORMATION
  Report Type: Spontaneous
  Country: US (occurrence: None)
  Receive Date: 20120924
  Receipt Date: 20120924
  Transmission Date: 20130627
  Serious: Yes (Hospitalization)
  Sender: FDA-Public Use
  Company Number: None

PATIENT
  Age: 27 Year
  Sex: Male
  Weight: 74.1 kg

DRUGS (2)
  1. ARIPIPRAZOLE [Suspect]
     Indication: BP
     Route: 048
     Dates: start: 20120423, end: 20120828
  2. ARIPIPRAZOLE [Suspect]
     Indication: POST-TRAUMATIC STRESS DISORDER
     Route: 048
     Dates: start: 20120423, end: 20120828

REACTIONS (4)
  - Dyspnoea exertional [None]
  - Chest pain [None]
  - Hyperglycaemia [None]
  - Diabetic ketoacidosis [None]
